FAERS Safety Report 5038919-3 (Version None)
Quarter: 2006Q2

REPORT INFORMATION
  Report Type: 
  Country: None (occurrence: None)
  Receive Date: 20060601
  Receipt Date: 20060101
  Transmission Date: 20061013
  Serious: No
  Sender: FDA-Public Use
  Company Number: 2006PV006445

PATIENT
  Age: 71 Year
  Sex: Female
  Weight: 71.6683 kg

DRUGS (5)
  1. BYETTA [Suspect]
     Indication: DIABETES MELLITUS NON-INSULIN-DEPENDENT
     Dosage: SEE IMAGE
     Route: 058
     Dates: start: 20051227, end: 20060101
  2. BYETTA [Suspect]
     Indication: DIABETES MELLITUS NON-INSULIN-DEPENDENT
     Dosage: SEE IMAGE
     Route: 058
     Dates: start: 20060101
  3. METFORMIN [Concomitant]
  4. ACTOS /USA/ [Concomitant]
  5. ACTOPLUS MET [Concomitant]

REACTIONS (9)
  - ASTHENIA [None]
  - BLOOD GLUCOSE INCREASED [None]
  - CHILLS [None]
  - DRUG INEFFECTIVE [None]
  - HICCUPS [None]
  - INJECTION SITE HAEMORRHAGE [None]
  - NASOPHARYNGITIS [None]
  - NAUSEA [None]
  - RHINORRHOEA [None]
